FAERS Safety Report 24330355 (Version 1)
Quarter: 2024Q3

REPORT INFORMATION
  Report Type: Spontaneous
  Country: IE (occurrence: IE)
  Receive Date: 20240918
  Receipt Date: 20240918
  Transmission Date: 20241017
  Serious: Yes (Life-Threatening, Other)
  Sender: NOVO NORDISK
  Company Number: IE-NOVOPROD-1281974

PATIENT
  Sex: Female

DRUGS (1)
  1. VAGIFEM [Suspect]
     Active Substance: ESTRADIOL
     Indication: Product used for unknown indication
     Dosage: INSERTED 3 TABLETS,ON 3 CONSECUTIVE DAYS

REACTIONS (2)
  - Abdominal pain [Recovered/Resolved]
  - Hallucination [Unknown]
